FAERS Safety Report 6026295-9 (Version None)
Quarter: 2008Q4

REPORT INFORMATION
  Report Type: 
  Country: None (occurrence: None)
  Receive Date: 20081230
  Receipt Date: 20081205
  Transmission Date: 20090506
  Serious: Yes (Death, Other)
  Sender: FDA-Public Use
  Company Number: 2008JP005544

PATIENT
  Age: 38 Year
  Sex: Male

DRUGS (3)
  1. PROGRAF [Suspect]
     Indication: LIVER TRANSPLANT
  2. STEROID [Concomitant]
  3. BLOOD TRANSFUSION, AUXILLARY PRODUCTS INJECTION [Concomitant]

REACTIONS (9)
  - ABDOMINAL INFECTION [None]
  - ASCITES [None]
  - ENCEPHALOPATHY [None]
  - HEPATIC FAILURE [None]
  - HEPATIC NECROSIS [None]
  - PLEURAL EFFUSION [None]
  - PROTHROMBIN TIME PROLONGED [None]
  - SUTURE RUPTURE [None]
  - TRANSPLANT REJECTION [None]
